FAERS Safety Report 24135449 (Version 1)
Quarter: 2024Q3

REPORT INFORMATION
  Report Type: Other
  Country: US (occurrence: US)
  Receive Date: 20240725
  Receipt Date: 20240725
  Transmission Date: 20241017
  Serious: Yes (Hospitalization)
  Sender: ALVOGEN
  Company Number: US-ALVOGEN-2024095126

PATIENT
  Age: 66 Year
  Sex: Female

DRUGS (2)
  1. OXYCODONE [Suspect]
     Active Substance: OXYCODONE
     Indication: Pain
     Dosage: IMMEDIATE-RELEASE
  2. MORPHINE [Suspect]
     Active Substance: MORPHINE
     Indication: Pain
     Dosage: EXTENDED-RELEASE

REACTIONS (5)
  - Lethargy [Unknown]
  - Mental status changes [Unknown]
  - Hypoxia [Unknown]
  - Hypotension [Recovering/Resolving]
  - Overdose [Unknown]
